FAERS Safety Report 23138959 (Version 1)
Quarter: 2023Q4

REPORT INFORMATION
  Report Type: Spontaneous
  Country: IT (occurrence: IT)
  Receive Date: 20231102
  Receipt Date: 20231102
  Transmission Date: 20240110
  Serious: Yes (Death, Other)
  Sender: FDA-Public Use
  Company Number: IT-AMGEN-ITASP2023192250

PATIENT

DRUGS (1)
  1. XGEVA [Suspect]
     Active Substance: DENOSUMAB
     Indication: Bone giant cell tumour
     Dosage: UNK
     Route: 065

REACTIONS (8)
  - Death [Fatal]
  - Breast cancer [Unknown]
  - Thyroid cancer [Unknown]
  - Hodgkin^s disease [Unknown]
  - Transitional cell carcinoma [Unknown]
  - Metastasis [Unknown]
  - Bone giant cell tumour [Unknown]
  - Ill-defined disorder [Unknown]
